FAERS Safety Report 7516705-X (Version None)
Quarter: 2011Q2

REPORT INFORMATION
  Report Type: 
  Country: None (occurrence: None)
  Receive Date: 20110601
  Receipt Date: 20110524
  Transmission Date: 20111010
  Serious: Yes (Death, Hospitalization)
  Sender: FDA-Public Use
  Company Number: US-GILEAD-2011-0039017

PATIENT
  Sex: Female

DRUGS (2)
  1. LETAIRIS [Suspect]
     Indication: PULMONARY HYPERTENSION
     Route: 048
     Dates: start: 20100602, end: 20110301
  2. LETAIRIS [Suspect]
     Route: 048
     Dates: start: 20110502

REACTIONS (3)
  - RESPIRATORY FAILURE [None]
  - PULMONARY HYPERTENSION [None]
  - OEDEMA [None]
